FAERS Safety Report 7435504-0 (Version None)
Quarter: 2011Q2

REPORT INFORMATION
  Report Type: 
  Country: None (occurrence: None)
  Receive Date: 20110415
  Receipt Date: 20110405
  Transmission Date: 20111010
  Serious: Yes (Death)
  Sender: FDA-Public Use
  Company Number: FK201100654

PATIENT
  Age: 55 Year
  Sex: Female

DRUGS (3)
  1. CYTARABINE [Suspect]
     Indication: ACUTE MYELOMONOCYTIC LEUKAEMIA
  2. IDARUBICIN HCL [Suspect]
     Indication: ACUTE MYELOMONOCYTIC LEUKAEMIA
  3. NEUPOGEN [Suspect]
     Indication: ACUTE MYELOMONOCYTIC LEUKAEMIA

REACTIONS (5)
  - ACUTE MYELOID LEUKAEMIA [None]
  - SEPSIS [None]
  - MYELODYSPLASTIC SYNDROME [None]
  - FEBRILE NEUTROPENIA [None]
  - PNEUMONIA [None]
